FAERS Safety Report 4798241-7 (Version None)
Quarter: 2005Q4

REPORT INFORMATION
  Report Type: 
  Country: None (occurrence: None)
  Receive Date: 20051011
  Receipt Date: 20051011
  Transmission Date: 20060501
  Serious: Yes (Other)
  Sender: FDA-Public Use
  Company Number: None

PATIENT
  Age: 57 Year
  Sex: Female

DRUGS (3)
  1. DOCETAXEL [Suspect]
     Indication: BREAST CANCER
     Dosage: 75MG/M2
     Dates: start: 20030815
  2. ADRIAMYCIN PFS [Concomitant]
  3. TAXOTERE/XELODA [Concomitant]

REACTIONS (18)
  - ALOPECIA [None]
  - ANAEMIA [None]
  - ARTHRALGIA [None]
  - BLISTER [None]
  - CANDIDIASIS [None]
  - DIARRHOEA [None]
  - DRY SKIN [None]
  - FATIGUE [None]
  - FLUID RETENTION [None]
  - HAIR GROWTH ABNORMAL [None]
  - MUCOSAL INFLAMMATION [None]
  - MYALGIA [None]
  - NAIL DISORDER [None]
  - NEUTROPENIA [None]
  - PERIPHERAL SENSORY NEUROPATHY [None]
  - RASH [None]
  - SKIN DISORDER [None]
  - SKIN EXFOLIATION [None]
